FAERS Safety Report 9653632 (Version 1)
Quarter: 2013Q4

REPORT INFORMATION
  Report Type: Spontaneous
  Country: US (occurrence: None)
  Receive Date: 20131028
  Receipt Date: 20131028
  Transmission Date: 20140711
  Serious: No
  Sender: FDA-Public Use
  Company Number: None

PATIENT
  Age: 30 Year
  Sex: Female
  Weight: 63.5 kg

DRUGS (1)
  1. BUPROPRION 300 MG [Suspect]
     Indication: DEPRESSION
     Dosage: 1 ONCE DAILY TAKEN BY MOUTH
     Route: 048
     Dates: start: 20131010, end: 20131025

REACTIONS (5)
  - Drug ineffective [None]
  - Agitation [None]
  - Anxiety [None]
  - Insomnia [None]
  - Depression [None]
